FAERS Safety Report 5305282-X (Version None)
Quarter: 2007Q2

REPORT INFORMATION
  Report Type: 
  Country: None (occurrence: None)
  Receive Date: 20070424
  Receipt Date: 20070416
  Transmission Date: 20071010
  Serious: Yes (Life-Threatening, Hospitalization)
  Sender: FDA-Public Use
  Company Number: US-RB-005957-07

PATIENT
  Sex: Female
  Weight: 92.7 kg

DRUGS (12)
  1. SUBOXONE [Suspect]
     Indication: PAIN MANAGEMENT
     Route: 060
     Dates: start: 20070309, end: 20070311
  2. SUBOXONE [Suspect]
     Route: 060
     Dates: start: 20070312, end: 20070318
  3. FLEXERIL [Concomitant]
     Indication: PAIN
     Dosage: DOSAGE AND DURATION OF TREATMENT UNKNOWN.
     Route: 048
  4. MACRODANTIN [Concomitant]
     Indication: URINARY TRACT INFECTION
     Dosage: DOSAGE AND DURATION OF TREATMENT UNKNOWN.
     Route: 048
  5. COREG [Concomitant]
     Indication: HYPERTENSION
     Dosage: DOSAGE AND DURATION OF TREATMENT UNKNOWN.
     Route: 048
  6. NEURONTIN [Concomitant]
     Indication: PAIN
     Dosage: DOSAGE AND DURATION OF TREATMENT UNKNOWN.
     Route: 048
  7. LASIX [Concomitant]
     Indication: HYPERTENSION
     Dosage: DOSAGE AND DURATION OF TREATMENT UNKNOWN.
     Route: 048
  8. LIPITOR [Concomitant]
     Dosage: DOSAGE AND DURATION OF TREATMENT UNKNOWN.
     Route: 048
  9. HUMALOG [Concomitant]
     Dosage: DOSAGE AND DURATION OF TREATMENT UNKNOWN.
     Route: 058
  10. ACTOS [Concomitant]
     Dosage: DOSAGE AND DURATION OF TREATMENT UNKNOWN.
     Route: 048
  11. EFFEXOR [Concomitant]
     Indication: DEPRESSION
     Dosage: DOSAGE AND DURATION OF TREATMENT UNKNOWN.
     Route: 048
  12. TRAZODONE HCL [Concomitant]
     Indication: DEPRESSION
     Dosage: DOSAGE AND DURATION OF TREATMENT UNKNOWN.
     Route: 048

REACTIONS (5)
  - ASTHENIA [None]
  - CARDIAC FAILURE CONGESTIVE [None]
  - DECREASED APPETITE [None]
  - FALL [None]
  - URINARY TRACT OBSTRUCTION [None]
